FAERS Safety Report 8312189-2 (Version None)
Quarter: 2012Q2

REPORT INFORMATION
  Report Type: 
  Country: None (occurrence: None)
  Receive Date: 20120425
  Receipt Date: 20120418
  Transmission Date: 20120825
  Serious: No
  Sender: FDA-Public Use
  Company Number: FR-FRI-1000029948

PATIENT
  Sex: Female

DRUGS (2)
  1. NEBIVOLOL [Suspect]
     Route: 048
     Dates: start: 20110801
  2. AMLODIPINE BESYLATE [Concomitant]
     Route: 048

REACTIONS (2)
  - ANTINUCLEAR ANTIBODY POSITIVE [None]
  - ARTHRITIS [None]
